FAERS Safety Report 6333710-X (Version None)
Quarter: 2009Q3

REPORT INFORMATION
  Report Type: 
  Country: None (occurrence: None)
  Receive Date: 20090829
  Receipt Date: 20090702
  Transmission Date: 20100115
  Serious: No
  Sender: FDA-Public Use
  Company Number: US-ABBOTT-09P-163-0578914-00

PATIENT
  Sex: Female

DRUGS (1)
  1. SIMCOR [Suspect]
     Indication: BLOOD CHOLESTEROL INCREASED
     Dosage: 500/20MG AT HS
     Dates: start: 20090607, end: 20090630

REACTIONS (3)
  - CHEST PAIN [None]
  - FLUSHING [None]
  - MUSCULOSKELETAL PAIN [None]
